FAERS Safety Report 25665499 (Version 1)
Quarter: 2025Q3

REPORT INFORMATION
  Report Type: Spontaneous
  Country: US (occurrence: US)
  Receive Date: 20250811
  Receipt Date: 20250811
  Transmission Date: 20251020
  Serious: No
  Sender: GALDERMA
  Company Number: US-GALDERMA-US2025012829

PATIENT

DRUGS (4)
  1. DOXYCYCLINE [Suspect]
     Active Substance: DOXYCYCLINE
     Indication: Rosacea
     Route: 048
  2. DESONIDE [Suspect]
     Active Substance: DESONIDE
     Indication: Product used for unknown indication
     Route: 061
  3. Celafexin [Concomitant]
     Indication: Rosacea
  4. KEFLEX [Concomitant]
     Active Substance: CEPHALEXIN
     Indication: Rosacea

REACTIONS (6)
  - Eye swelling [Unknown]
  - Ocular hyperaemia [Unknown]
  - Swelling of eyelid [Unknown]
  - Swelling face [Unknown]
  - Eye pruritus [Unknown]
  - Hypersensitivity [Unknown]
